FAERS Safety Report 20092675 (Version 2)
Quarter: 2021Q4

REPORT INFORMATION
  Report Type: Spontaneous
  Country: US (occurrence: US)
  Receive Date: 20211120
  Receipt Date: 20211223
  Transmission Date: 20220303
  Serious: No
  Sender: FDA-Public Use
  Company Number: US-SA-SAC20211117001421

PATIENT
  Sex: Female

DRUGS (11)
  1. CERDELGA [Suspect]
     Active Substance: ELIGLUSTAT
     Indication: Gaucher^s disease
     Dosage: 84 MG, BID
     Route: 048
     Dates: start: 20200531
  2. VENTOLIN [Concomitant]
     Active Substance: ALBUTEROL SULFATE
  3. DOXEPIN [Concomitant]
     Active Substance: DOXEPIN
  4. BACLOFEN [Concomitant]
     Active Substance: BACLOFEN
  5. BACLOFEN [Concomitant]
     Active Substance: BACLOFEN
  6. ABILIFY [Concomitant]
     Active Substance: ARIPIPRAZOLE
  7. ABILIFY [Concomitant]
     Active Substance: ARIPIPRAZOLE
  8. ONDANSETRON [Concomitant]
     Active Substance: ONDANSETRON
  9. ONDANSETRON [Concomitant]
     Active Substance: ONDANSETRON
  10. PRAZOSIN [Concomitant]
     Active Substance: PRAZOSIN
  11. PRAZOSIN [Concomitant]
     Active Substance: PRAZOSIN

REACTIONS (2)
  - Nasopharyngitis [Unknown]
  - Mental disorder [Unknown]
